FAERS Safety Report 8987752 (Version 1)
Quarter: 2012Q4

REPORT INFORMATION
  Report Type: 
  Country: US (occurrence: US)
  Receive Date: 20121227
  Receipt Date: 20121227
  Transmission Date: 20130627
  Serious: No
  Sender: FDA-Public Use
  Company Number: US-PFIZER INC-2012326228

PATIENT
  Sex: Male

DRUGS (4)
  1. VIAGRA [Suspect]
     Indication: ERECTILE DYSFUNCTION
     Dosage: 100 mg, as needed
  2. GLUCOPHAGE [Concomitant]
     Indication: DIABETES
     Dosage: 500 mg, 2x/day
  3. AMARYL [Concomitant]
     Indication: DIABETES
     Dosage: 1 mg, 2x/day
  4. AMLODIPINE [Concomitant]
     Indication: HYPERTENSION
     Dosage: 10 mg, daily

REACTIONS (1)
  - Drug ineffective [Unknown]
